FAERS Safety Report 12791773 (Version 1)
Quarter: 2016Q3

REPORT INFORMATION
  Report Type: Report from Study
  Country: PR (occurrence: PR)
  Receive Date: 20160929
  Receipt Date: 20160929
  Transmission Date: 20161109
  Serious: Yes (Hospitalization, Other)
  Sender: FDA-Public Use
  Company Number: PR-BAYER-2016-113524

PATIENT
  Age: 72 Year
  Sex: Male

DRUGS (4)
  1. NEXAVAR [Suspect]
     Active Substance: SORAFENIB
     Indication: HEPATOCELLULAR CARCINOMA
     Dosage: 200 MG, BID (1 TABLET IN AM AND 1 TAB IN PM)
     Route: 048
     Dates: start: 201310
  2. LOSARTAN. [Concomitant]
     Active Substance: LOSARTAN
  3. ACETOPHEN [ACETYLSALICYLIC ACID] [Concomitant]
  4. LIPITOR [Concomitant]
     Active Substance: ATORVASTATIN CALCIUM

REACTIONS (4)
  - Cardiac failure [Not Recovered/Not Resolved]
  - Myocardial infarction [Not Recovered/Not Resolved]
  - Coronary angioplasty [None]
  - Acute myocardial infarction [None]

NARRATIVE: CASE EVENT DATE: 20140218
